FAERS Safety Report 5421764-4 (Version None)
Quarter: 2007Q3

REPORT INFORMATION
  Report Type: 
  Country: None (occurrence: None)
  Receive Date: 20070821
  Receipt Date: 20070814
  Transmission Date: 20080115
  Serious: Yes (Other)
  Sender: FDA-Public Use
  Company Number: MX-PFIZER INC-2007068046

PATIENT
  Sex: Male

DRUGS (1)
  1. REACTINE [Suspect]
     Indication: HYPERSENSITIVITY
     Route: 048

REACTIONS (3)
  - DRUG INEFFECTIVE [None]
  - GENERALISED OEDEMA [None]
  - HYPERSENSITIVITY [None]
